FAERS Safety Report 5943657-6 (Version None)
Quarter: 2008Q4

REPORT INFORMATION
  Report Type: 
  Country: None (occurrence: None)
  Receive Date: 20081106
  Receipt Date: 20081029
  Transmission Date: 20090506
  Serious: Yes (Other)
  Sender: FDA-Public Use
  Company Number: JP-PFIZER INC-2008091881

PATIENT
  Age: 48 Year
  Sex: Female

DRUGS (3)
  1. GENOTROPIN [Suspect]
     Indication: GROWTH HORMONE DEFICIENCY
  2. TAXOL [Concomitant]
  3. DRUG, UNSPECIFIED [Concomitant]
     Indication: NEOPLASM MALIGNANT

REACTIONS (2)
  - METASTASES TO BONE MARROW [None]
  - METASTASES TO UTERUS [None]
